FAERS Safety Report 6880952-0 (Version None)
Quarter: 2010Q2

REPORT INFORMATION
  Report Type: 
  Country: None (occurrence: None)
  Receive Date: 20100630
  Receipt Date: 20091023
  Transmission Date: 20101027
  Serious: Yes (Other)
  Sender: FDA-Public Use
  Company Number: 2009288252

PATIENT

DRUGS (1)
  1. ZITHROMAX [Suspect]

REACTIONS (1)
  - DEAFNESS [None]
